FAERS Safety Report 8359968-3 (Version None)
Quarter: 2012Q2

REPORT INFORMATION
  Report Type: 
  Country: None (occurrence: None)
  Receive Date: 20120515
  Receipt Date: 20120503
  Transmission Date: 20120825
  Serious: Yes (Other)
  Sender: FDA-Public Use
  Company Number: US-JNJFOC-20120506811

PATIENT
  Age: 28 Year
  Sex: Male

DRUGS (6)
  1. NEURONTIN [Concomitant]
     Route: 065
  2. DEPAKOTE [Concomitant]
     Route: 065
  3. BUSPAR [Concomitant]
     Route: 065
  4. TRAZODONE HCL [Concomitant]
     Route: 065
  5. ALL OTHER THERAPEUTIC DRUGS [Concomitant]
     Route: 065
  6. INVEGA [Suspect]
     Indication: PRODUCT USED FOR UNKNOWN INDICATION
     Route: 048

REACTIONS (4)
  - BLOOD PROLACTIN INCREASED [None]
  - TREMOR [None]
  - CONFUSIONAL STATE [None]
  - BLOOD TESTOSTERONE DECREASED [None]
